FAERS Safety Report 24124615 (Version 1)
Quarter: 2024Q3

REPORT INFORMATION
  Report Type: Spontaneous
  Country: AT (occurrence: AT)
  Receive Date: 20240723
  Receipt Date: 20240723
  Transmission Date: 20241016
  Serious: Yes (Other)
  Sender: SANDOZ
  Company Number: AT-ROCHE-3368665

PATIENT
  Age: 35 Year
  Sex: Female
  Weight: 62 kg

DRUGS (99)
  1. ARIMIDEX [Suspect]
     Active Substance: ANASTROZOLE
     Indication: Product used for unknown indication
     Dosage: 1 MG, QD
     Route: 048
     Dates: start: 20230630
  2. EXEMESTANE [Suspect]
     Active Substance: EXEMESTANE
     Indication: HER2 positive breast cancer
     Dosage: 25 MG, QD (MOST RECENT DOSE OF EXEMESTANE: 30/JUN/2023)
     Route: 048
     Dates: start: 20200120, end: 20230630
  3. CAPECITABINE [Suspect]
     Active Substance: CAPECITABINE
     Indication: HER2 positive breast cancer
     Dosage: 1000 MG
     Route: 048
     Dates: start: 20220623, end: 20230612
  4. CAPECITABINE [Suspect]
     Active Substance: CAPECITABINE
     Indication: HER2 positive breast cancer
     Dosage: 1000 MILLIGRAM, 0.5 MG/DAY
     Route: 048
     Dates: start: 20220623, end: 20230612
  5. DOCETAXEL [Suspect]
     Active Substance: DOCETAXEL\DOCETAXEL ANHYDROUS
     Dosage: 25 MG, QD
     Route: 065
     Dates: start: 20200120, end: 20230630
  6. DOCETAXEL [Suspect]
     Active Substance: DOCETAXEL\DOCETAXEL ANHYDROUS
     Indication: HER2 positive breast cancer
     Dosage: UNK, TIW, 75 MG/M2
     Route: 042
     Dates: start: 20170621, end: 20171115
  7. DENOSUMAB [Suspect]
     Active Substance: DENOSUMAB
     Indication: HER2 positive breast cancer
     Dosage: 120 MG, Q4W
     Route: 058
     Dates: start: 20170621
  8. EXEMESTANE [Suspect]
     Active Substance: EXEMESTANE
     Indication: HER2 positive breast cancer
     Dosage: 25 MG, QD
     Route: 048
     Dates: start: 20200120
  9. ENHERTU [Suspect]
     Active Substance: FAM-TRASTUZUMAB DERUXTECAN-NXKI
     Indication: HER2 positive breast cancer
     Dosage: 360.000MG TIW
     Route: 042
     Dates: start: 20210722, end: 20220603
  10. ENHERTU [Suspect]
     Active Substance: FAM-TRASTUZUMAB DERUXTECAN-NXKI
     Dosage: 360.000MG TIW
     Route: 042
     Dates: start: 20210722, end: 20220703
  11. FEMARA [Suspect]
     Active Substance: LETROZOLE
     Indication: HER2 positive breast cancer
     Dosage: 2.5 MG, QD (MOST RECENT DOSE PRIOR TO AE 20/JAN/2020)
     Route: 048
     Dates: start: 20180108, end: 20200120
  12. GOSERELIN ACETATE [Suspect]
     Active Substance: GOSERELIN ACETATE
     Indication: HER2 positive breast cancer
     Dosage: 3.6 MG, Q4W
     Route: 058
     Dates: start: 20180108
  13. HERCEPTIN [Suspect]
     Active Substance: TRASTUZUMAB
     Dosage: 420 MG, TID
     Route: 042
     Dates: start: 20180108, end: 20191127
  14. HERCEPTIN [Suspect]
     Active Substance: TRASTUZUMAB
     Dosage: 6 MG/KG, TIW
     Route: 042
     Dates: start: 20170712, end: 20171115
  15. HERCEPTIN [Suspect]
     Active Substance: TRASTUZUMAB
     Dosage: 6 MG/KG, TIW
     Route: 042
     Dates: start: 20180108, end: 20191127
  16. HERCEPTIN [Suspect]
     Active Substance: TRASTUZUMAB
     Dosage: 600 MG/KG, TIW
     Route: 065
     Dates: start: 20201028, end: 20210709
  17. HERCEPTIN [Suspect]
     Active Substance: TRASTUZUMAB
     Dosage: 600 MG/KG, TIW
     Route: 065
     Dates: start: 20220623
  18. HERCEPTIN [Suspect]
     Active Substance: TRASTUZUMAB
     Indication: HER2 positive breast cancer
     Dosage: 8 MG/KG, TIW (MOST RECENT DOSE PRIOR TO THE EVENT: 23 JUN 2022)
     Route: 042
     Dates: start: 20170621, end: 20170621
  19. KADCYLA [Suspect]
     Active Substance: ADO-TRASTUZUMAB EMTANSINE
     Indication: HER2 positive breast cancer
     Dosage: 208 MG, TIW
     Route: 042
     Dates: start: 20200120, end: 20200302
  20. KADCYLA [Suspect]
     Active Substance: ADO-TRASTUZUMAB EMTANSINE
     Dosage: 208.8 MG, TIW
     Route: 042
     Dates: start: 20200120, end: 20200302
  21. KADCYLA [Suspect]
     Active Substance: ADO-TRASTUZUMAB EMTANSINE
     Dosage: 237 MG, TIW
     Route: 042
     Dates: start: 20200323, end: 20201006
  22. KADCYLA [Suspect]
     Active Substance: ADO-TRASTUZUMAB EMTANSINE
     Dosage: 600 MG/KG, TIW
     Route: 042
     Dates: start: 20220623
  23. KADCYLA [Suspect]
     Active Substance: ADO-TRASTUZUMAB EMTANSINE
     Dosage: 8 MG/KG, TIW
     Route: 042
     Dates: start: 20170621, end: 20170621
  24. KADCYLA [Suspect]
     Active Substance: ADO-TRASTUZUMAB EMTANSINE
     Dosage: 8 MG/KG, TIW
     Route: 065
     Dates: start: 20170712, end: 20171115
  25. KADCYLA [Suspect]
     Active Substance: ADO-TRASTUZUMAB EMTANSINE
     Dosage: 8 MG/KG, TIW
     Route: 065
     Dates: start: 20180108, end: 20190127
  26. LETROZOLE [Suspect]
     Active Substance: LETROZOLE
     Indication: HER2 positive breast cancer
     Dosage: 2.5 MG, QD (MOST RECENT DOSE PRIOR TO AE 20 JAN 2020)
     Route: 048
     Dates: start: 20180108
  27. LETROZOLE [Suspect]
     Active Substance: LETROZOLE
     Dosage: 208 MG, TIW
     Route: 042
     Dates: start: 20200120, end: 20200302
  28. LETROZOLE [Suspect]
     Active Substance: LETROZOLE
     Dosage: 208.8 MG, TIW
     Route: 065
     Dates: end: 20200302
  29. LETROZOLE [Suspect]
     Active Substance: LETROZOLE
     Dosage: 237 MG, TIW
     Route: 042
     Dates: start: 20200323, end: 20201006
  30. LETROZOLE [Suspect]
     Active Substance: LETROZOLE
     Dosage: 250 MG, QD
     Route: 065
     Dates: start: 20200128, end: 20210709
  31. LETROZOLE [Suspect]
     Active Substance: LETROZOLE
     Dosage: 250 MG, QD
     Route: 065
     Dates: start: 20230630
  32. LETROZOLE [Suspect]
     Active Substance: LETROZOLE
     Dosage: 600 MG/KG, TIW
     Route: 065
     Dates: start: 20220623
  33. LETROZOLE [Suspect]
     Active Substance: LETROZOLE
     Dosage: 8 MG/KG, TIW
     Route: 065
     Dates: start: 20170621, end: 20170621
  34. LETROZOLE [Suspect]
     Active Substance: LETROZOLE
     Dosage: 8 MG/KG, TIW
     Route: 065
     Dates: start: 20170712, end: 20171115
  35. LETROZOLE [Suspect]
     Active Substance: LETROZOLE
     Dosage: 8 MG/KG, TIW
     Route: 065
     Dates: start: 20180108, end: 20190127
  36. PERJETA [Suspect]
     Active Substance: PERTUZUMAB
     Dosage: 420 MG, TIW
     Route: 042
     Dates: start: 20180108, end: 20191127
  37. PERJETA [Suspect]
     Active Substance: PERTUZUMAB
     Dosage: 420 MG, TIW
     Route: 042
     Dates: start: 20180712, end: 20191127
  38. PERJETA [Suspect]
     Active Substance: PERTUZUMAB
     Indication: HER2 positive breast cancer
     Dosage: 840 MG, TIW (MOST RECENT DOSE PRIOR TO THE EVENT: 08 JAN 2028)
     Route: 042
     Dates: start: 20170621, end: 20170621
  39. TAXOTERE [Suspect]
     Active Substance: DOCETAXEL
     Indication: HER2 positive breast cancer
     Dosage: 75 MG/M2, TIW (MOST RECENT DOSE PRIOR TO AE 15 NOV 2017)
     Route: 042
     Dates: start: 20170621, end: 20171115
  40. TAXOTERE [Suspect]
     Active Substance: DOCETAXEL
     Dosage: 75 MG/M2, TIW (MOST RECENT DOSE PRIOR TO AE 15/NOV/2017)
     Route: 041
     Dates: start: 20170621, end: 20171115
  41. TUCATINIB [Suspect]
     Active Substance: TUCATINIB
     Indication: HER2 positive breast cancer
     Dosage: 150 MG, BID (MOST RECENT DOSE OF TUCTINIB: 12/JUN/2023)
     Route: 048
     Dates: start: 20220623, end: 20230612
  42. TUCATINIB [Suspect]
     Active Substance: TUCATINIB
     Dosage: 420 MG, TIW
     Route: 065
     Dates: start: 20170712, end: 20171115
  43. TUCATINIB [Suspect]
     Active Substance: TUCATINIB
     Dosage: 420 MG, TIW
     Route: 065
     Dates: start: 20180108, end: 20191127
  44. TUCATINIB [Suspect]
     Active Substance: TUCATINIB
     Dosage: 840 MG, TIW
     Route: 065
     Dates: start: 20170621
  45. TYKERB [Suspect]
     Active Substance: LAPATINIB DITOSYLATE
     Indication: HER2 positive breast cancer
     Dosage: 250 MG, QD (MOST RECENT DOSE PRIOR TO AE 09 JUL 2021)
     Route: 048
     Dates: start: 20201028, end: 20210709
  46. TYKERB [Suspect]
     Active Substance: LAPATINIB DITOSYLATE
     Dosage: 250 MG
     Route: 065
     Dates: start: 20230630
  47. XGEVA [Suspect]
     Active Substance: DENOSUMAB
     Dosage: 3.6 MG, Q4W
     Route: 065
     Dates: start: 20180129
  48. XGEVA [Suspect]
     Active Substance: DENOSUMAB
     Indication: Product used for unknown indication
     Dosage: UNK
     Route: 065
     Dates: start: 20170621
  49. GOSERELIN [Suspect]
     Active Substance: GOSERELIN
     Indication: HER2 positive breast cancer
     Dosage: 3.6 MG, QMO
     Route: 058
  50. AMOXICILLIN AND CLAVULANATE POTASSIUM [Concomitant]
     Active Substance: AMOXICILLIN\CLAVULANATE POTASSIUM
     Indication: Pneumonia
     Dosage: UNK
     Route: 065
     Dates: start: 20230509
  51. AMOXICILLIN AND CLAVULANATE POTASSIUM [Concomitant]
     Active Substance: AMOXICILLIN\CLAVULANATE POTASSIUM
     Dosage: UNK
     Route: 065
  52. AMOXICILLIN TRIHYDRATE [Concomitant]
     Active Substance: AMOXICILLIN
     Indication: Pneumonia
     Dosage: UNK
     Route: 048
     Dates: start: 20230508, end: 20230515
  53. APREPITANT [Concomitant]
     Active Substance: APREPITANT
     Indication: Product used for unknown indication
     Dosage: UNK
     Route: 065
     Dates: start: 20210812
  54. CALCIUM CARBONATE\CHOLECALCIFEROL [Concomitant]
     Active Substance: CALCIUM CARBONATE\CHOLECALCIFEROL
     Indication: Product used for unknown indication
     Dosage: UNK
     Route: 065
     Dates: start: 20171025
  55. AMOXICILLIN\CLAVULANATE POTASSIUM [Concomitant]
     Active Substance: AMOXICILLIN\CLAVULANATE POTASSIUM
     Indication: Pneumonia
     Dosage: UNK
     Route: 065
     Dates: start: 20230508, end: 20230515
  56. DEXABENE [Concomitant]
     Indication: Product used for unknown indication
     Dosage: UNK
     Route: 065
  57. DIPHENHYDRAMINE HYDROCHLORIDE [Concomitant]
     Active Substance: DIPHENHYDRAMINE HYDROCHLORIDE
     Indication: Product used for unknown indication
     Dosage: UNK
     Route: 048
     Dates: start: 20230508, end: 20230515
  58. FENTANYL [Concomitant]
     Active Substance: FENTANYL\FENTANYL CITRATE
     Indication: Product used for unknown indication
     Dosage: UNK
     Route: 065
  59. ESOMEPRAZOLE [Concomitant]
     Active Substance: ESOMEPRAZOLE
     Indication: Product used for unknown indication
     Dosage: UNK
     Route: 065
     Dates: start: 20170621
  60. EMEND [Concomitant]
     Active Substance: APREPITANT
     Indication: Product used for unknown indication
     Dosage: UNK
     Route: 065
     Dates: start: 20210812
  61. LOPERAMIDE HYDROCHLORIDE [Concomitant]
     Active Substance: LOPERAMIDE HYDROCHLORIDE
     Indication: Product used for unknown indication
     Dosage: UNK
     Route: 065
     Dates: start: 20201028
  62. ESOMEPRAZOLE [Concomitant]
     Active Substance: ESOMEPRAZOLE
     Indication: Product used for unknown indication
     Dosage: UNK
     Route: 065
     Dates: start: 20230515
  63. FENTANYL [Concomitant]
     Active Substance: FENTANYL\FENTANYL CITRATE
     Indication: Product used for unknown indication
     Route: 065
  64. DEXAMETHASONE [Concomitant]
     Active Substance: DEXAMETHASONE
     Indication: Syncope
     Dosage: UNK
     Route: 065
     Dates: start: 20201111
  65. DEXAMETHASONE [Concomitant]
     Active Substance: DEXAMETHASONE
     Dosage: UNK
     Route: 065
  66. CLOBAZAM [Concomitant]
     Active Substance: CLOBAZAM
     Indication: Epilepsy
     Dosage: UNK
     Route: 065
     Dates: start: 20230508
  67. CLOBAZAM [Concomitant]
     Active Substance: CLOBAZAM
     Dosage: ONGOING = CHECKED
     Route: 065
     Dates: start: 20230508
  68. CLOBAZAM [Concomitant]
     Active Substance: CLOBAZAM
     Dosage: ONGOING = CHECKED
     Route: 065
     Dates: start: 20230508
  69. CLOBAZAM [Concomitant]
     Active Substance: CLOBAZAM
     Dosage: ONGOING = CHECKED
     Route: 065
     Dates: start: 20230508
  70. CLOBAZAM [Concomitant]
     Active Substance: CLOBAZAM
     Dosage: ONGOING = CHECKED
     Route: 065
     Dates: start: 20230508
  71. KETAMINE HYDROCHLORIDE [Concomitant]
     Active Substance: KETAMINE HYDROCHLORIDE
     Indication: HER2 positive breast cancer
     Dosage: 250 MG, QD ((MOST RECENT DOSE PRIOR TO AE 09/JUL/2021)
     Route: 065
     Dates: start: 20201028, end: 20210709
  72. Ketanest [Concomitant]
     Indication: Product used for unknown indication
     Dosage: UNK
     Route: 065
  73. KETOPROFEN [Concomitant]
     Active Substance: KETOPROFEN
     Indication: Product used for unknown indication
     Dosage: UNK
     Route: 065
  74. LETROZOLE [Concomitant]
     Active Substance: LETROZOLE
     Dosage: 208 MG, ONCE EVERY 3 WK
     Route: 042
     Dates: start: 20200120, end: 20200302
  75. LETROZOLE [Concomitant]
     Active Substance: LETROZOLE
     Indication: Product used for unknown indication
     Dosage: 208.8 MG, ONCE EVERY 3 WK
     Route: 042
     Dates: start: 20200120, end: 20200302
  76. LETROZOLE [Concomitant]
     Active Substance: LETROZOLE
     Dosage: 237 MG, ONCE EVERY 3 WK
     Route: 042
     Dates: start: 20200323, end: 20201006
  77. LETROZOLE [Concomitant]
     Active Substance: LETROZOLE
     Dosage: 600 MG/KG, ONCE EVERY 3 WK (MOST RECENT DOSE PRIOR TO THE EVENT: 23/JUN/2022)
     Route: 065
     Dates: start: 20220623
  78. LETROZOLE [Concomitant]
     Active Substance: LETROZOLE
     Indication: HER2 positive breast cancer
     Dosage: 8 MG/KG, ONCE EVERY 3 WK (MOST RECENT DOSE PRIOR TO THE EVENT: 23/JUN/2022)
     Route: 065
     Dates: start: 20170621, end: 20170621
  79. LETROZOLE [Concomitant]
     Active Substance: LETROZOLE
     Dosage: 8 MG/KG, ONCE EVERY 3 WK (MOST RECENT DOSE PRIOR TO THE EVENT: 23/JUN/2022)
     Route: 065
     Dates: start: 20170712, end: 20171115
  80. LETROZOLE [Concomitant]
     Active Substance: LETROZOLE
     Dosage: 8 MG/KG, ONCE EVERY 3 WK (MOST RECENT DOSE PRIOR TO THE EVENT: 23/JUN/2022)
     Route: 065
     Dates: start: 20180108, end: 20190127
  81. LEVETIRACETAM [Concomitant]
     Active Substance: LEVETIRACETAM
     Dosage: UNK
     Route: 048
     Dates: start: 20230508, end: 20230515
  82. LEVETIRACETAM [Concomitant]
     Active Substance: LEVETIRACETAM
     Indication: Product used for unknown indication
     Dosage: UNK
     Route: 065
     Dates: start: 20200102
  83. LEVETIRACETAM [Concomitant]
     Active Substance: LEVETIRACETAM
     Dosage: ONGOING = CHECKED
     Route: 065
     Dates: start: 20200102
  84. LEVETIRACETAM [Concomitant]
     Active Substance: LEVETIRACETAM
     Dosage: ONGOING = CHECKED
     Route: 065
     Dates: start: 20200102
  85. LEVETIRACETAM [Concomitant]
     Active Substance: LEVETIRACETAM
     Dosage: ONGOING = CHECKED
     Route: 065
     Dates: start: 20200102
  86. LEVETIRACETAM [Concomitant]
     Active Substance: LEVETIRACETAM
     Dosage: ONGOING = CHECKED
     Route: 065
     Dates: start: 20200102
  87. LIPEGFILGRASTIM [Concomitant]
     Active Substance: LIPEGFILGRASTIM
     Dosage: UNK
     Route: 048
     Dates: start: 20230508, end: 20230515
  88. LIPEGFILGRASTIM [Concomitant]
     Active Substance: LIPEGFILGRASTIM
     Indication: Product used for unknown indication
     Dosage: UNK
     Route: 065
  89. LOPERAMIDE HYDROCHLORIDE [Concomitant]
     Active Substance: LOPERAMIDE HYDROCHLORIDE
     Indication: Product used for unknown indication
     Dosage: UNK
     Route: 065
  90. NEXIUM [Concomitant]
     Active Substance: ESOMEPRAZOLE MAGNESIUM
     Indication: Product used for unknown indication
     Dosage: UNK
     Route: 065
  91. NEXIUM [Concomitant]
     Active Substance: ESOMEPRAZOLE MAGNESIUM
     Dosage: UNK
     Route: 065
     Dates: start: 20191230
  92. Novalgin [Concomitant]
     Dosage: UNK
     Route: 048
     Dates: start: 20230508, end: 20230515
  93. Novalgin [Concomitant]
     Indication: Product used for unknown indication
     Dosage: UNK
     Route: 065
     Dates: start: 20230508, end: 20230515
  94. KETOPROFEN [Concomitant]
     Active Substance: KETOPROFEN
     Indication: Product used for unknown indication
     Dosage: UNK
     Route: 065
     Dates: start: 20230508, end: 20230515
  95. PROPOFOL [Concomitant]
     Active Substance: PROPOFOL
     Indication: Product used for unknown indication
     Dosage: UNK
     Route: 065
  96. SULTAMICILLIN TOSYLATE [Concomitant]
     Active Substance: SULTAMICILLIN TOSYLATE
     Indication: Pneumonia
     Route: 065
  97. UNASYN [Concomitant]
     Active Substance: AMPICILLIN SODIUM\SULBACTAM SODIUM
     Dosage: UNK
     Route: 048
     Dates: start: 20230508, end: 20230515
  98. UNASYN [Concomitant]
     Active Substance: AMPICILLIN SODIUM\SULBACTAM SODIUM
     Indication: Pneumonia
     Dosage: UNK
     Route: 065
     Dates: start: 20230507, end: 20230508
  99. ZOFRAN [Concomitant]
     Active Substance: ONDANSETRON HYDROCHLORIDE
     Indication: Product used for unknown indication
     Dosage: UNK
     Route: 048
     Dates: start: 20230508, end: 20230515

REACTIONS (1)
  - Cataract [Recovered/Resolved]

NARRATIVE: CASE EVENT DATE: 20230511
